FAERS Safety Report 4903104-X (Version None)
Quarter: 2006Q1

REPORT INFORMATION
  Report Type: 
  Country: None (occurrence: None)
  Receive Date: 20060207
  Receipt Date: 20060126
  Transmission Date: 20060701
  Serious: Yes (Other)
  Sender: FDA-Public Use
  Company Number: JP-ROCHE-434371

PATIENT
  Age: 75 Year
  Sex: Female

DRUGS (2)
  1. TAMIFLU [Suspect]
     Indication: INFLUENZA
     Route: 048
     Dates: start: 20060121, end: 20060123
  2. PL [Concomitant]
     Route: 048

REACTIONS (2)
  - GASTRIC MUCOSAL LESION [None]
  - REFLUX OESOPHAGITIS [None]
